FAERS Safety Report 7214018-7 (Version None)
Quarter: 2011Q1

REPORT INFORMATION
  Report Type: 
  Country: None (occurrence: None)
  Receive Date: 20110107
  Receipt Date: 20110103
  Transmission Date: 20110831
  Serious: Yes (Hospitalization, Other)
  Sender: FDA-Public Use
  Company Number: US-BIOGENIDEC-2010BI013065

PATIENT
  Age: 45 Year
  Sex: Female

DRUGS (2)
  1. AVONEX [Suspect]
     Indication: MULTIPLE SCLEROSIS
     Route: 030
     Dates: start: 20010712
  2. AVONEX [Suspect]
     Route: 030
     Dates: start: 20070219, end: 20100801

REACTIONS (4)
  - CONVULSION [None]
  - MEMORY IMPAIRMENT [None]
  - DEPRESSION [None]
  - CROHN'S DISEASE [None]
